FAERS Safety Report 15561645 (Version 1)
Quarter: 2018Q4

REPORT INFORMATION
  Report Type: Spontaneous
  Country: US (occurrence: US)
  Receive Date: 20181029
  Receipt Date: 20181029
  Transmission Date: 20190205
  Serious: No
  Sender: FDA-Public Use
  Company Number: US-GLAXOSMITHKLINE-US2018189869

PATIENT
  Age: 66 Year
  Sex: Female

DRUGS (2)
  1. ABREVA [Suspect]
     Active Substance: DOCOSANOL
     Indication: ORAL HERPES
     Dosage: UNK (USING IT 5 TIMES)
     Dates: start: 20181015
  2. ABREVA [Suspect]
     Active Substance: DOCOSANOL
     Dosage: UNK (USING IT 5 TIMES)
     Dates: start: 20181015

REACTIONS (3)
  - Lip dry [Unknown]
  - Oral herpes [Unknown]
  - Condition aggravated [Unknown]

NARRATIVE: CASE EVENT DATE: 20181015
